FAERS Safety Report 11287686 (Version 3)
Quarter: 2021Q4

REPORT INFORMATION
  Report Type: Spontaneous
  Country: US (occurrence: US)
  Receive Date: 20150721
  Receipt Date: 20211102
  Transmission Date: 20220303
  Serious: No
  Sender: FDA-Public Use
  Company Number: US-PFIZER INC-2015237131

PATIENT
  Age: 66 Year
  Sex: Female

DRUGS (3)
  1. CELEBREX [Suspect]
     Active Substance: CELECOXIB
     Indication: Spondylitis
     Dosage: 200 MG, DAILY
     Route: 048
  2. CELEBREX [Suspect]
     Active Substance: CELECOXIB
     Indication: Arthritis
     Dosage: 200 MG DAILY, (TAKE 1 CAPSULE (200 MG) BY MOUTH DAILY. TAKING DAILY IN AM_
     Route: 048
     Dates: start: 20210505
  3. CELEBREX [Suspect]
     Active Substance: CELECOXIB
     Indication: Enthesopathy

REACTIONS (2)
  - Suspected counterfeit product [Unknown]
  - Drug ineffective [Unknown]
